FAERS Safety Report 17876995 (Version 4)
Quarter: 2020Q3

REPORT INFORMATION
  Report Type: Spontaneous
  Country: US (occurrence: US)
  Receive Date: 20200609
  Receipt Date: 20200915
  Transmission Date: 20201103
  Serious: No
  Sender: FDA-Public Use
  Company Number: US-LEXICON PHARMACEUTICALS, INC-20-1606-00440

PATIENT
  Age: 65 Year
  Sex: Female

DRUGS (3)
  1. XERMELO [Suspect]
     Active Substance: TELOTRISTAT ETHYL
     Indication: CARCINOID TUMOUR OF THE SMALL BOWEL
     Dates: start: 20200515
  2. IRBESARTAN. [Concomitant]
     Active Substance: IRBESARTAN
     Indication: HYPERTENSION
  3. HYDROCHLOROTHIAZIDE. [Concomitant]
     Active Substance: HYDROCHLOROTHIAZIDE
     Indication: HYPERTENSION

REACTIONS (2)
  - Flatulence [Not Recovered/Not Resolved]
  - Product dose omission issue [Recovered/Resolved]
